FAERS Safety Report 9680225 (Version 3)
Quarter: 2014Q1

REPORT INFORMATION
  Report Type: Spontaneous
  Country: US (occurrence: US)
  Receive Date: 20131111
  Receipt Date: 20140206
  Transmission Date: 20141002
  Serious: Yes (Hospitalization)
  Sender: FDA-Public Use
  Company Number: US-BIOGENIDEC-2013BI106564

PATIENT
  Age: 35 Year
  Sex: Female

DRUGS (10)
  1. TYSABRI [Suspect]
     Indication: MULTIPLE SCLEROSIS
     Route: 042
     Dates: start: 20070706, end: 20130626
  2. BACLOFEN [Concomitant]
     Indication: MUSCLE SPASMS
  3. CLONAZEPAM [Concomitant]
     Indication: EPILEPSY
  4. CLONAZEPAM [Concomitant]
     Indication: CONVULSION
  5. DEMECLOCYCLINE [Concomitant]
     Indication: INAPPROPRIATE ANTIDIURETIC HORMONE SECRETION
  6. FLUCONAZOLE [Concomitant]
     Indication: URINARY TRACT INFECTION
  7. KEPPRA [Concomitant]
     Indication: EPILEPSY
  8. KEPPRA [Concomitant]
     Indication: CONVULSION
  9. METOPROLOL [Concomitant]
     Indication: ESSENTIAL HYPERTENSION
  10. SODIUM CHLORIDE [Concomitant]
     Indication: INAPPROPRIATE ANTIDIURETIC HORMONE SECRETION

REACTIONS (3)
  - Multiple sclerosis relapse [Not Recovered/Not Resolved]
  - Klebsiella infection [Unknown]
  - Urinary tract infection enterococcal [Unknown]
